FAERS Safety Report 13530966 (Version 1)
Quarter: 2017Q2

REPORT INFORMATION
  Report Type: Spontaneous
  Country: US (occurrence: US)
  Receive Date: 20170509
  Receipt Date: 20170509
  Transmission Date: 20170830
  Serious: Yes (Hospitalization)
  Sender: FDA-Public Use
  Company Number: None

PATIENT
  Age: 48 Year
  Sex: Male

DRUGS (4)
  1. SENOKOT [Concomitant]
     Active Substance: SENNOSIDES
  2. TACROLIMUS PERRIGO [Suspect]
     Active Substance: TACROLIMUS
     Indication: TRANSPLANT
     Dosage: TWO 1MG CAPS TWICE DAILY ORALLY
     Route: 048
     Dates: start: 20161117
  3. BACTRIM [Concomitant]
     Active Substance: SULFAMETHOXAZOLE\TRIMETHOPRIM
  4. CYCLOPHOSPHORINE [Concomitant]

REACTIONS (1)
  - Liver disorder [None]
